FAERS Safety Report 18712518 (Version 6)
Quarter: 2021Q2

REPORT INFORMATION
  Report Type: Report from Study
  Country: None (occurrence: US)
  Receive Date: 20210107
  Receipt Date: 20210428
  Transmission Date: 20210717
  Serious: Yes (Other)
  Sender: FDA-Public Use
  Company Number: US-ABBVIE-20K-163-3654839-00

PATIENT
  Age: 52 Year
  Sex: Female
  Weight: 90.8 kg

DRUGS (6)
  1. HUMIRA [Suspect]
     Active Substance: ADALIMUMAB
     Route: 058
     Dates: start: 2021, end: 20210414
  2. MEDROL [Concomitant]
     Active Substance: METHYLPREDNISOLONE
     Indication: PRODUCT USED FOR UNKNOWN INDICATION
  3. HUMIRA [Suspect]
     Active Substance: ADALIMUMAB
     Route: 058
     Dates: start: 20210120, end: 202102
  4. COVID?19 VACCINE NOS. [Concomitant]
     Active Substance: COVID-19 VACCINE NOS
     Indication: COVID-19 IMMUNISATION
     Dosage: MODERNA
     Route: 030
     Dates: start: 20210324, end: 20210324
  5. PREDNISONE. [Concomitant]
     Active Substance: PREDNISONE
     Indication: PRODUCT USED FOR UNKNOWN INDICATION
  6. HUMIRA [Suspect]
     Active Substance: ADALIMUMAB
     Indication: RHEUMATOID ARTHRITIS
     Route: 058
     Dates: start: 20201014, end: 20201210

REACTIONS (20)
  - Gingival disorder [Recovered/Resolved]
  - Pharyngeal swelling [Not Recovered/Not Resolved]
  - Pharyngitis bacterial [Unknown]
  - Gait disturbance [Unknown]
  - Tonsillitis [Recovered/Resolved]
  - Wrong technique in product usage process [Unknown]
  - Gingival recession [Recovered/Resolved]
  - Crown lengthening [Unknown]
  - Joint swelling [Not Recovered/Not Resolved]
  - Product administered at inappropriate site [Unknown]
  - Incorrect dose administered [Unknown]
  - Joint stiffness [Not Recovered/Not Resolved]
  - Injection site swelling [Recovered/Resolved]
  - Pain [Unknown]
  - Discomfort [Unknown]
  - Loss of personal independence in daily activities [Unknown]
  - Injection site induration [Recovered/Resolved]
  - Hot flush [Unknown]
  - Hyperhidrosis [Unknown]
  - Arthralgia [Not Recovered/Not Resolved]

NARRATIVE: CASE EVENT DATE: 2020
